FAERS Safety Report 5872656-8 (Version None)
Quarter: 2008Q3

REPORT INFORMATION
  Report Type: 
  Country: None (occurrence: None)
  Receive Date: 20080905
  Receipt Date: 20080827
  Transmission Date: 20090109
  Serious: Yes (Hospitalization)
  Sender: FDA-Public Use
  Company Number: PHHO2006TH18507

PATIENT
  Sex: Male
  Weight: 69.96 kg

DRUGS (1)
  1. TASIGNA [Suspect]
     Indication: CHRONIC MYELOID LEUKAEMIA
     Dosage: 800 MG, DAILY DOSE
     Route: 048
     Dates: start: 20061025

REACTIONS (8)
  - ANAEMIA [None]
  - BICYTOPENIA [None]
  - DYSPNOEA [None]
  - FATIGUE [None]
  - MALIGNANT NEOPLASM PROGRESSION [None]
  - PALLOR [None]
  - PETECHIAE [None]
  - THROMBOCYTOPENIA [None]
